FAERS Safety Report 22086599 (Version 3)
Quarter: 2023Q2

REPORT INFORMATION
  Report Type: Report from Study
  Country: US (occurrence: US)
  Receive Date: 20230312
  Receipt Date: 20230623
  Transmission Date: 20230722
  Serious: No
  Sender: FDA-Public Use
  Company Number: US-002147023-NVSC2023US055097

PATIENT
  Age: 49 Year
  Sex: Female

DRUGS (3)
  1. KESIMPTA [Suspect]
     Active Substance: OFATUMUMAB
     Indication: Relapsing multiple sclerosis
     Dosage: UNK, QMO
     Route: 058
     Dates: start: 20230304
  2. KESIMPTA [Suspect]
     Active Substance: OFATUMUMAB
     Dosage: UNK, QMO (2ND DOSE)
     Route: 058
  3. KESIMPTA [Suspect]
     Active Substance: OFATUMUMAB
     Dosage: UNK, QMO (3RD DOSE)
     Route: 058

REACTIONS (7)
  - Influenza like illness [Unknown]
  - Nausea [Unknown]
  - Nasopharyngitis [Unknown]
  - Pyrexia [Recovering/Resolving]
  - Fatigue [Unknown]
  - Pain [Unknown]
  - Feeling abnormal [Unknown]

NARRATIVE: CASE EVENT DATE: 20230304
